FAERS Safety Report 20715336 (Version 10)
Quarter: 2022Q3

REPORT INFORMATION
  Report Type: Report from Study
  Country: GB (occurrence: GB)
  Receive Date: 20220415
  Receipt Date: 20220715
  Transmission Date: 20221027
  Serious: Yes (Hospitalization)
  Sender: FDA-Public Use
  Company Number: GB-002147023-NVSC2022GB063451

PATIENT
  Age: 20 Year
  Sex: Male
  Weight: 72.1 kg

DRUGS (8)
  1. TOPOTECAN HYDROCHLORIDE [Suspect]
     Active Substance: TOPOTECAN HYDROCHLORIDE
     Indication: Refractory cancer
     Dosage: 0.75 MG/M2, 21D  (MAXIMUM 5 DAYS EVERY 21 DAYS)
     Route: 042
     Dates: start: 20220221
  2. TOPOTECAN HYDROCHLORIDE [Suspect]
     Active Substance: TOPOTECAN HYDROCHLORIDE
     Indication: Refractory cancer
  3. CYCLOPHOSPHAMIDE [Suspect]
     Active Substance: CYCLOPHOSPHAMIDE
     Indication: Refractory cancer
     Dosage: 250 MG/M2, 21D, POWDER FOR SOLUTION FOR INJECTION (MAXIMUM 5 DAYS EVERY 21 DAYS)
     Route: 042
     Dates: start: 20220221
  4. CYCLOPHOSPHAMIDE [Suspect]
     Active Substance: CYCLOPHOSPHAMIDE
     Indication: Recurrent cancer
  5. VENETOCLAX [Suspect]
     Active Substance: VENETOCLAX
     Indication: Refractory cancer
     Dosage: 800 MG, QD
     Route: 048
     Dates: start: 20220218
  6. ONDANSETRON [Concomitant]
     Active Substance: ONDANSETRON
     Indication: Prophylaxis of nausea and vomiting
     Dosage: 8 MG, 3X/DAY
     Route: 048
     Dates: start: 20220218
  7. COTRIMOXAZOLE [Concomitant]
     Active Substance: SULFAMETHOXAZOLE\TRIMETHOPRIM
     Indication: Pneumocystis jirovecii pneumonia
     Dosage: 960 MG, BID (MONDAY, WEDNESDAY AND FRIDAY, 2 IN 1 DAY)
     Route: 048
     Dates: start: 20220218
  8. LEVOTHYROXINE [Concomitant]
     Active Substance: LEVOTHYROXINE
     Indication: Hypothyroidism
     Dosage: 75 UG, QD
     Route: 048
     Dates: start: 20200707

REACTIONS (3)
  - Febrile neutropenia [Recovered/Resolved]
  - Febrile neutropenia [Recovered/Resolved]
  - Proctalgia [Not Recovered/Not Resolved]

NARRATIVE: CASE EVENT DATE: 20220302
